FAERS Safety Report 10929599 (Version 1)
Quarter: 2015Q1

REPORT INFORMATION
  Report Type: Spontaneous
  Country: US (occurrence: None)
  Receive Date: 20150318
  Receipt Date: 20150318
  Transmission Date: 20150721
  Serious: No
  Sender: FDA-Public Use
  Company Number: None

PATIENT
  Age: 46 Year
  Sex: Female

DRUGS (4)
  1. HYDROXYCUT BLACK ONYX [Concomitant]
  2. ERGOCALCIFEROL (VIT D2) [Concomitant]
  3. ZOLPIDEM TARTRATE. [Suspect]
     Active Substance: ZOLPIDEM TARTRATE
     Indication: SLEEP DISORDER
     Dosage: 1/2-1 TAB AT BEDTIME
     Route: 048
  4. FLUOXETINE HCL 20MG [Concomitant]

REACTIONS (17)
  - Confusional state [None]
  - Depressed mood [None]
  - Discomfort [None]
  - Irritability [None]
  - Decreased appetite [None]
  - Pyrexia [None]
  - Dizziness [None]
  - Insomnia [None]
  - Palpitations [None]
  - Heart rate irregular [None]
  - Tremor [None]
  - Asthenia [None]
  - Coordination abnormal [None]
  - Fatigue [None]
  - Gait disturbance [None]
  - Decreased interest [None]
  - Disturbance in attention [None]

NARRATIVE: CASE EVENT DATE: 20150228
